FAERS Safety Report 7361314-9 (Version None)
Quarter: 2011Q1

REPORT INFORMATION
  Report Type: 
  Country: None (occurrence: None)
  Receive Date: 20110318
  Receipt Date: 20110314
  Transmission Date: 20110831
  Serious: Yes (Other)
  Sender: FDA-Public Use
  Company Number: B0674384A

PATIENT
  Sex: Female

DRUGS (7)
  1. TRUSOPT [Concomitant]
     Indication: GLAUCOMA
     Route: 047
  2. VENTILASTIN [Concomitant]
     Indication: ASTHMA
  3. FORMOTEROL FUMARATE [Concomitant]
     Indication: ASTHMA
  4. SPIRIVA [Concomitant]
     Indication: ASTHMA
  5. ANTIHYPERTENSIVE [Concomitant]
  6. AVAMYS [Suspect]
     Dosage: 55MCG TWICE PER DAY
     Route: 045
     Dates: start: 20080101, end: 20100912
  7. SYMBICORT [Concomitant]
     Indication: ASTHMA
     Dosage: 400MCG TWICE PER DAY
     Route: 055
     Dates: start: 20090101

REACTIONS (4)
  - CATARACT [None]
  - BLOOD PRESSURE INCREASED [None]
  - VISUAL ACUITY REDUCED [None]
  - OFF LABEL USE [None]
